FAERS Safety Report 5828839-6 (Version None)
Quarter: 2008Q3

REPORT INFORMATION
  Report Type: 
  Country: None (occurrence: None)
  Receive Date: 20080729
  Receipt Date: 20080715
  Transmission Date: 20090109
  Serious: Yes (Hospitalization)
  Sender: FDA-Public Use
  Company Number: DSA_32161_2008

PATIENT
  Sex: Female

DRUGS (6)
  1. MONO-TILDIEM (MONO-TILDIEM - DILTIAZEM HYDROCHLORIDE (PROLONGED RELEAS [Suspect]
     Indication: DRUG USE FOR UNKNOWN INDICATION
     Dosage: DF ORAL
     Route: 048
     Dates: start: 20070403, end: 20070530
  2. TERALITHE (TERALITHE - LITHIUM CARBONATE) 250 MG (NOT SPECIFIED) [Suspect]
     Indication: BIPOLAR I DISORDER
     Dosage: 250 MG TID ORAL
     Route: 048
     Dates: start: 19820101, end: 20070815
  3. PIPRAM (PIPRAM - PIPEMIDIC ACID) 400 MG [Suspect]
     Indication: DRUG USE FOR UNKNOWN INDICATION
     Dosage: ORAL
     Route: 048
     Dates: start: 20070723, end: 20070730
  4. PAROXETINE HCL [Concomitant]
  5. PRAZEPAM [Concomitant]
  6. ALENDRONIC ACID [Concomitant]

REACTIONS (8)
  - BLOOD CREATININE INCREASED [None]
  - BLOOD SODIUM INCREASED [None]
  - DEHYDRATION [None]
  - DRUG INTERACTION [None]
  - DYSARTHRIA [None]
  - OVERDOSE [None]
  - PSYCHOMOTOR SKILLS IMPAIRED [None]
  - TREMOR [None]
